FAERS Safety Report 7659476-9 (Version None)
Quarter: 2011Q3

REPORT INFORMATION
  Report Type: 
  Country: None (occurrence: None)
  Receive Date: 20110805
  Receipt Date: 20110803
  Transmission Date: 20111222
  Serious: Yes (Hospitalization, Congenital Anomaly, Other)
  Sender: FDA-Public Use
  Company Number: US-PFIZER INC-2010092580

PATIENT
  Sex: Male
  Weight: 2.7 kg

DRUGS (15)
  1. CYTOMEL [Concomitant]
     Indication: DEPRESSION
     Dosage: 25 UG, UNK
     Route: 064
  2. AMPICILLIN [Concomitant]
     Dosage: 500 MG, UNK
     Route: 064
     Dates: start: 20030929
  3. CLONAZEPAM [Concomitant]
     Indication: DEPRESSION
     Dosage: UNK
     Route: 064
  4. ZOFRAN [Concomitant]
     Indication: NAUSEA
     Dosage: UNK
     Route: 064
  5. COVERA-HS [Concomitant]
     Dosage: 180 MG, EVERY MORNING
     Route: 064
  6. PRENATAL VITAMINS [Concomitant]
     Dosage: UNK
     Route: 064
  7. COVERA-HS [Concomitant]
     Dosage: 360 MG, 1X/DAY
     Route: 064
  8. ZOLOFT [Suspect]
     Dosage: 50 MG, UNK
  9. KLONOPIN [Concomitant]
     Indication: ANXIETY
     Dosage: 0.5 MG, UNK
     Route: 064
  10. VERAPAMIL [Concomitant]
     Indication: DEPRESSION
     Dosage: UNK
     Route: 064
  11. MELLARIL [Concomitant]
     Indication: DEPRESSION
     Dosage: UNK
     Route: 064
  12. ZOLOFT [Suspect]
     Indication: DEPRESSION
     Dosage: 75 MG, ONE AND HALF TABLET DAILY
     Route: 064
  13. NEXIUM [Concomitant]
     Indication: DEPRESSION
     Dosage: UNK
     Route: 064
  14. AMBIEN [Concomitant]
     Dosage: 5 MG, UNK
     Route: 064
  15. COREX [Concomitant]
     Dosage: 180 MG, 2X/DAY
     Route: 064

REACTIONS (19)
  - SEPSIS [None]
  - MATERNAL EXPOSURE DURING PREGNANCY [None]
  - HYPERBILIRUBINAEMIA [None]
  - NEONATAL RESPIRATORY DISTRESS SYNDROME [None]
  - PULMONARY VALVE INCOMPETENCE [None]
  - RIGHT ATRIAL DILATATION [None]
  - AMBLYOPIA [None]
  - LEFT ATRIAL DILATATION [None]
  - NEONATAL TACHYPNOEA [None]
  - JAUNDICE NEONATAL [None]
  - INGUINAL HERNIA [None]
  - FALLOT'S TETRALOGY [None]
  - BAND NEUTROPHIL COUNT INCREASED [None]
  - DILATATION VENTRICULAR [None]
  - PATENT DUCTUS ARTERIOSUS [None]
  - TRICUSPID VALVE INCOMPETENCE [None]
  - CATARACT CONGENITAL [None]
  - ATRIAL SEPTAL DEFECT [None]
  - CARDIOMEGALY [None]
